FAERS Safety Report 9460454 (Version 1)
Quarter: 2013Q3

REPORT INFORMATION
  Report Type: Spontaneous
  Country: DE (occurrence: DE)
  Receive Date: 20130815
  Receipt Date: 20130815
  Transmission Date: 20140515
  Serious: Yes (Congenital Anomaly, Other)
  Sender: FDA-Public Use
  Company Number: GXKR2013DE002648

PATIENT
  Age: 1 Day
  Sex: Male
  Weight: 4.5 kg

DRUGS (4)
  1. AMINEURIN [Suspect]
     Indication: SLEEP DISORDER
     Dosage: MATERNAL DOSE: 75 [MG/D ]/ INTERMITTENTLY
     Route: 064
  2. ZOLOFT [Suspect]
     Indication: DEPRESSION
     Dosage: MATERNAL DOSE: 100 [MG/D ]/ NEAR THE END OF PREGNANCY DOSE REDUCTION TO 75MG/D
     Route: 064
  3. BROMAZEPAM [Concomitant]
     Indication: SLEEP DISORDER
     Dosage: MATERNAL DOSE: AS NEEDED
     Route: 064
  4. THYROXIN [Concomitant]
     Indication: HYPOTHYROIDISM
     Dosage: MATERNAL DOSE: 100 [?G/D ]
     Route: 064

REACTIONS (2)
  - Hydrocele [Recovered/Resolved]
  - Neonatal respiratory distress syndrome [Recovered/Resolved]
